FAERS Safety Report 4479356-X (Version None)
Quarter: 2004Q4

REPORT INFORMATION
  Report Type: 
  Country: None (occurrence: None)
  Receive Date: 20041020
  Receipt Date: 20041013
  Transmission Date: 20050328
  Serious: Yes (Hospitalization)
  Sender: FDA-Public Use
  Company Number: US-JNJFOC-20041004205

PATIENT
  Sex: Female

DRUGS (3)
  1. DURAGESIC [Suspect]
     Route: 062
     Dates: start: 20030101
  2. DURAGESIC [Suspect]
     Route: 062
     Dates: start: 20030101
  3. DURAGESIC [Suspect]
     Route: 062
     Dates: start: 20030101

REACTIONS (6)
  - APHASIA [None]
  - DIZZINESS [None]
  - DYSSTASIA [None]
  - FEELING ABNORMAL [None]
  - SEDATION [None]
  - VOMITING [None]
